APPROVED DRUG PRODUCT: AMINOSYN II 4.25% W/ ELECTROLYTES IN DEXTROSE 20% W/ CALCIUM IN PLASTIC CONTAINER
Active Ingredient: AMINO ACIDS; CALCIUM CHLORIDE; DEXTROSE; MAGNESIUM CHLORIDE; POTASSIUM CHLORIDE; POTASSIUM PHOSPHATE, DIBASIC; SODIUM CHLORIDE
Strength: 4.25%;36.8MG/100ML;20GM/100ML;51MG/100ML;22.4MG/100ML;261MG/100ML;205MG/100ML
Dosage Form/Route: INJECTABLE;INJECTION
Application: N019714 | Product #002
Applicant: ABBOTT LABORATORIES HOSP PRODUCTS DIV
Approved: Sep 12, 1988 | RLD: No | RS: No | Type: DISCN